FAERS Safety Report 21832392 (Version 1)
Quarter: 2023Q1

REPORT INFORMATION
  Report Type: Spontaneous
  Country: US (occurrence: US)
  Receive Date: 20230106
  Receipt Date: 20230106
  Transmission Date: 20230417
  Serious: No
  Sender: FDA-Public Use
  Company Number: US-ALLERGAN-2231207US

PATIENT
  Age: 59 Year
  Sex: Male

DRUGS (5)
  1. QULIPTA [Suspect]
     Active Substance: ATOGEPANT
     Indication: Migraine
     Dosage: 30 MG, QD
     Route: 048
     Dates: start: 2022
  2. QULIPTA [Suspect]
     Active Substance: ATOGEPANT
     Dosage: UNK
     Dates: start: 20220608
  3. UBRELVY [Concomitant]
     Active Substance: UBROGEPANT
  4. CHOLECALCIFEROL [Concomitant]
     Active Substance: CHOLECALCIFEROL
  5. VITAMIN C [Concomitant]
     Active Substance: ASCORBIC ACID

REACTIONS (1)
  - Drug ineffective [Unknown]

NARRATIVE: CASE EVENT DATE: 20220608
